FAERS Safety Report 6585839-9 (Version None)
Quarter: 2010Q1

REPORT INFORMATION
  Report Type: 
  Country: None (occurrence: None)
  Receive Date: 20100217
  Receipt Date: 20100217
  Transmission Date: 20100710
  Serious: Yes (Hospitalization)
  Sender: FDA-Public Use
  Company Number: None

PATIENT
  Sex: Female
  Weight: 72 kg

DRUGS (2)
  1. CARBOPLATIN [Suspect]
     Dosage: 477.9 MG
  2. TAXOL [Suspect]
     Dosage: 313.2 MG

REACTIONS (5)
  - ANAEMIA [None]
  - ARTHRALGIA [None]
  - BLOOD POTASSIUM ABNORMAL [None]
  - JOINT SWELLING [None]
  - SEPTIC ARTHRITIS STAPHYLOCOCCAL [None]
